FAERS Safety Report 14893773 (Version 1)
Quarter: 2018Q2

REPORT INFORMATION
  Report Type: Spontaneous
  Country: US (occurrence: US)
  Receive Date: 20180425
  Receipt Date: 20180425
  Transmission Date: 20180711
  Serious: Yes (Hospitalization)
  Sender: FDA-Public Use
  Company Number: None

PATIENT
  Age: 49 Year
  Sex: Female
  Weight: 112.5 kg

DRUGS (1)
  1. HYDROMORPHONE HYDROCHLORIDE 10MG/ML INJECTION [Suspect]
     Active Substance: HYDROMORPHONE HYDROCHLORIDE
     Indication: PROCEDURAL PAIN
     Dosage: ?          OTHER FREQUENCY:ONE TIME;?
     Route: 042
     Dates: start: 20171211, end: 20171211

REACTIONS (11)
  - Vomiting projectile [None]
  - Dysstasia [None]
  - Hyperhidrosis [None]
  - Product use issue [None]
  - Vertigo [None]
  - Headache [None]
  - Loss of bladder sensation [None]
  - Diarrhoea [None]
  - Myalgia [None]
  - Nausea [None]
  - Chills [None]

NARRATIVE: CASE EVENT DATE: 20171211
